FAERS Safety Report 5270146-7 (Version None)
Quarter: 2007Q1

REPORT INFORMATION
  Report Type: 
  Country: None (occurrence: None)
  Receive Date: 20061213
  Receipt Date: 20030829
  Transmission Date: 20070707
  Serious: Yes (Other)
  Sender: FDA-Public Use
  Company Number: 2003UW11033

PATIENT
  Age: 75 Year
  Sex: Male
  Weight: 54.4316 kg

DRUGS (6)
  1. IRESSA [Suspect]
  2. OXYCODONE HCL [Concomitant]
  3. SINGULAIR [Concomitant]
  4. BECLOMETHASONE DIPROPIONATE [Concomitant]
  5. ALBUTEROL [Concomitant]
  6. HALCION [Concomitant]

REACTIONS (2)
  - DIARRHOEA [None]
  - HYPOAESTHESIA [None]
